FAERS Safety Report 24392415 (Version 3)
Quarter: 2025Q3

REPORT INFORMATION
  Report Type: Spontaneous
  Country: CA (occurrence: CA)
  Receive Date: 20241003
  Receipt Date: 20250810
  Transmission Date: 20251020
  Serious: Yes (Other)
  Sender: ALEXION PHARMACEUTICALS
  Company Number: CA-AstraZeneca-CH-00712859AMP

PATIENT
  Age: 61 Year
  Sex: Female

DRUGS (1)
  1. SYMBICORT [Suspect]
     Active Substance: BUDESONIDE\FORMOTEROL FUMARATE DIHYDRATE
     Indication: Bacterial infection
     Dosage: 200 MICROGRAM, BID

REACTIONS (9)
  - Overdose [Unknown]
  - Lung neoplasm malignant [Unknown]
  - Visual impairment [Unknown]
  - Nervousness [Unknown]
  - Anxiety [Unknown]
  - Bacterial infection [Unknown]
  - Thyroidectomy [Unknown]
  - Cardiac operation [Unknown]
  - Surgery [Unknown]
